FAERS Safety Report 16568921 (Version 3)
Quarter: 2019Q3

REPORT INFORMATION
  Report Type: Report from Study
  Country: None (occurrence: US)
  Receive Date: 20190713
  Receipt Date: 20190730
  Transmission Date: 20191004
  Serious: Yes (Death)
  Sender: FDA-Public Use
  Company Number: US-ABBVIE-19K-163-2852534-00

PATIENT
  Sex: Male

DRUGS (1)
  1. HUMIRA [Suspect]
     Active Substance: ADALIMUMAB
     Indication: CROHN^S DISEASE
     Route: 058
     Dates: start: 20190701, end: 20190701

REACTIONS (4)
  - Anaemia [Fatal]
  - Cerebrovascular accident [Fatal]
  - Failure to thrive [Fatal]
  - Rectal haemorrhage [Fatal]
